FAERS Safety Report 8416531-3 (Version None)
Quarter: 2012Q2

REPORT INFORMATION
  Report Type: 
  Country: None (occurrence: None)
  Receive Date: 20120606
  Receipt Date: 20120522
  Transmission Date: 20120825
  Serious: Yes (Death)
  Sender: FDA-Public Use
  Company Number: US-GLAXOSMITHKLINE-A0979920A

PATIENT
  Age: 76 Year
  Sex: Female

DRUGS (2)
  1. HYCAMTIN [Suspect]
     Indication: LUNG NEOPLASM MALIGNANT
     Dosage: 4.25MG CYCLIC
     Route: 048
     Dates: end: 20120326
  2. TARCEVA [Suspect]
     Indication: LUNG NEOPLASM MALIGNANT

REACTIONS (2)
  - DRUG INEFFECTIVE [None]
  - DEATH [None]
